FAERS Safety Report 4436764-0 (Version None)
Quarter: 2004Q3

REPORT INFORMATION
  Report Type: 
  Country: None (occurrence: None)
  Receive Date: 20040728
  Receipt Date: 20030813
  Transmission Date: 20050211
  Serious: Yes (Hospitalization)
  Sender: FDA-Public Use
  Company Number: 201942

PATIENT
  Age: 55 Year
  Sex: Female

DRUGS (1)
  1. RITUXAN [Suspect]
     Indication: HODGKIN'S DISEASE
     Dosage: 1/WEEK, INTRAVENOUS
     Route: 042
     Dates: start: 20030723

REACTIONS (1)
  - PYREXIA [None]
